FAERS Safety Report 17418891 (Version 1)
Quarter: 2020Q1

REPORT INFORMATION
  Report Type: Spontaneous
  Country: IT (occurrence: IT)
  Receive Date: 20200214
  Receipt Date: 20200214
  Transmission Date: 20200409
  Serious: Yes (Death)
  Sender: FDA-Public Use
  Company Number: IT-009507513-2002ITA003661

PATIENT
  Age: 60 Year
  Sex: Male

DRUGS (1)
  1. KEYTRUDA [Suspect]
     Active Substance: PEMBROLIZUMAB
     Indication: NEOPLASM MALIGNANT
     Dosage: 200 MILLIGRAM, TOTAL
     Dates: start: 20200121, end: 20200121

REACTIONS (5)
  - Asthenia [Fatal]
  - Pain in extremity [Fatal]
  - Neck pain [Fatal]
  - Rhabdomyolysis [Fatal]
  - Myalgia [Fatal]

NARRATIVE: CASE EVENT DATE: 20200125
